FAERS Safety Report 23786020 (Version 1)
Quarter: 2024Q2

REPORT INFORMATION
  Report Type: Spontaneous
  Country: CH (occurrence: CH)
  Receive Date: 20240426
  Receipt Date: 20240426
  Transmission Date: 20240716
  Serious: Yes (Hospitalization, Other)
  Sender: FDA-Public Use
  Company Number: None

PATIENT
  Age: 74 Year
  Sex: Female
  Weight: 54.9 kg

DRUGS (1)
  1. EVENITY [Suspect]
     Active Substance: ROMOSOZUMAB-AQQG
     Indication: Osteoporotic fracture
     Dosage: 210 MILLIGRAM, MONTHLY (QM)
     Route: 058
     Dates: start: 20231230, end: 20240202

REACTIONS (2)
  - Acute myocardial infarction [Recovering/Resolving]
  - Coronary angioplasty [Unknown]

NARRATIVE: CASE EVENT DATE: 20240101
